FAERS Safety Report 14592962 (Version 1)
Quarter: 2018Q1

REPORT INFORMATION
  Report Type: Spontaneous
  Country: HR (occurrence: HR)
  Receive Date: 20180302
  Receipt Date: 20180302
  Transmission Date: 20180509
  Serious: Yes (Other)
  Sender: FDA-Public Use
  Company Number: HR-BAYER-2018-036772

PATIENT
  Age: 81 Year
  Sex: Male

DRUGS (1)
  1. ASPIRIN PROTECT 100 MG [Suspect]
     Active Substance: ASPIRIN
     Dosage: UNK

REACTIONS (6)
  - Renal failure [None]
  - Hemiparesis [None]
  - Aphasia [None]
  - Cerebral infarction [None]
  - Speech disorder [None]
  - Atrial fibrillation [None]
